FAERS Safety Report 15953691 (Version 3)
Quarter: 2024Q1

REPORT INFORMATION
  Report Type: Spontaneous
  Country: PL (occurrence: PL)
  Receive Date: 20190213
  Receipt Date: 20240110
  Transmission Date: 20240410
  Serious: Yes (Hospitalization)
  Sender: FDA-Public Use
  Company Number: PL-ROCHE-2263870

PATIENT
  Age: 27 Year
  Sex: Male
  Weight: 76 kg

DRUGS (17)
  1. GANCICLOVIR [Suspect]
     Active Substance: GANCICLOVIR
     Indication: Acute graft versus host disease
     Route: 042
     Dates: start: 20181126, end: 20181231
  2. GANCICLOVIR [Suspect]
     Active Substance: GANCICLOVIR
     Indication: Cytomegalovirus infection
     Route: 042
     Dates: start: 20181211
  3. VALGANCICLOVIR [Suspect]
     Active Substance: VALGANCICLOVIR
     Indication: Epstein-Barr virus infection reactivation
     Route: 065
     Dates: start: 20181204
  4. METHYLPREDNISOLONE [Suspect]
     Active Substance: METHYLPREDNISOLONE
     Indication: Acute graft versus host disease
     Dosage: EVERYDAY ON 02/DEC/2018 LAST DOSERECEIVED PRIOR TO SAE ONSET
     Route: 042
     Dates: start: 20181124, end: 20181226
  5. METHYLPREDNISOLONE [Suspect]
     Active Substance: METHYLPREDNISOLONE
     Dosage: EVERYDAY QOD (EVERY OTHER DAY)
     Route: 065
     Dates: start: 20181227, end: 20190102
  6. ITACITINIB [Suspect]
     Active Substance: ITACITINIB
     Indication: Acute graft versus host disease
     Dosage: EVERY DAY?ON 2/DEC/2018 LAST DOSERECEIVED PRIOR TO SAE ONSET
     Route: 065
     Dates: start: 20181126, end: 20181230
  7. ITACITINIB [Suspect]
     Active Substance: ITACITINIB
     Route: 065
     Dates: start: 20181231
  8. SIROLIMUS [Suspect]
     Active Substance: SIROLIMUS
     Indication: Immunosuppressant drug therapy
     Route: 065
     Dates: start: 20181113
  9. FOSCAVIR [Suspect]
     Active Substance: FOSCARNET SODIUM
     Indication: Cytomegalovirus infection
     Route: 042
     Dates: start: 20181231
  10. ACYCLOVIR [Concomitant]
     Active Substance: ACYCLOVIR
     Route: 065
     Dates: start: 20181127
  11. VORICONAZOLE [Concomitant]
     Active Substance: VORICONAZOLE
     Indication: Antifungal prophylaxis
     Route: 065
     Dates: start: 20181127
  12. SULFAMETHOXAZOLE\TRIMETHOPRIM [Concomitant]
     Active Substance: SULFAMETHOXAZOLE\TRIMETHOPRIM
     Indication: Antibiotic prophylaxis
     Dates: start: 20181129
  13. CIDOFOVIR [Concomitant]
     Active Substance: CIDOFOVIR
     Dosage: 5 MG/KG (TOTAL DOSE 375 MG)
     Route: 042
     Dates: start: 20190115
  14. GRANULOCYTE COLONY-STIMULATING FACTOR NOS [Concomitant]
     Active Substance: GRANULOCYTE COLONY-STIMULATING FACTOR NOS
     Dates: start: 20181228, end: 20190104
  15. RITUXIMAB [Concomitant]
     Active Substance: RITUXIMAB
     Route: 065
     Dates: start: 20181210, end: 20190210
  16. RITUXIMAB [Concomitant]
     Active Substance: RITUXIMAB
     Dates: start: 20181219, end: 20181219
  17. RITUXIMAB [Concomitant]
     Active Substance: RITUXIMAB
     Dates: start: 20181226, end: 20181226

REACTIONS (5)
  - Cytomegalovirus viraemia [Recovered/Resolved with Sequelae]
  - Pancytopenia [Recovering/Resolving]
  - Epstein-Barr virus infection reactivation [Recovered/Resolved]
  - Drug resistance [Unknown]
  - Cytomegalovirus infection reactivation [Recovering/Resolving]

NARRATIVE: CASE EVENT DATE: 20181203
